FAERS Safety Report 8264743 (Version 2)
Quarter: 2014Q1

REPORT INFORMATION
  Report Type: Spontaneous
  Country: FR (occurrence: FR)
  Receive Date: 20111128
  Receipt Date: 20140129
  Transmission Date: 20141002
  Serious: Yes (Congenital Anomaly)
  Sender: FDA-Public Use
  Company Number: FR-GLAXOSMITHKLINE-B0763730A

PATIENT
  Sex: Male

DRUGS (2)
  1. LAMICTAL [Suspect]
     Indication: EPILEPSY
     Route: 064
     Dates: start: 2010, end: 20110531
  2. URBANYL [Concomitant]
     Dosage: 5MG PER DAY
     Route: 064

REACTIONS (6)
  - Cerebral calcification [Not Recovered/Not Resolved]
  - Cerebral ventricle dilatation [Unknown]
  - Periventricular leukomalacia [Unknown]
  - Congenital brain damage [Unknown]
  - Metabolic disorder [Not Recovered/Not Resolved]
  - Foetal exposure during pregnancy [Unknown]
